FAERS Safety Report 6239078-1 (Version None)
Quarter: 2009Q2

REPORT INFORMATION
  Report Type: 
  Country: None (occurrence: None)
  Receive Date: 20090622
  Receipt Date: 20090617
  Transmission Date: 20091009
  Serious: Yes (Death, Other)
  Sender: FDA-Public Use
  Company Number: PHHY2009FR24417

PATIENT
  Age: 40 Year
  Sex: Male

DRUGS (6)
  1. CYCLOSPORINE [Suspect]
     Indication: STEM CELL TRANSPLANT
     Dosage: 3 MG/KG, UNK
  2. CYCLOSPORINE [Suspect]
     Indication: PROPHYLAXIS AGAINST GRAFT VERSUS HOST DISEASE
  3. METHOTREXATE [Suspect]
     Indication: PROPHYLAXIS AGAINST GRAFT VERSUS HOST DISEASE
     Dosage: 15 MG/M2, UNK
  4. METHOTREXATE [Suspect]
     Dosage: 10 MG/M2, UNK
  5. BUSULFAN [Concomitant]
     Dosage: 16 MG/KG, UNK
  6. CYCLOPHOSPHAMIDE [Concomitant]
     Dosage: 150 MG/KG, UNK

REACTIONS (11)
  - ACUTE GRAFT VERSUS HOST DISEASE IN LIVER [None]
  - ACUTE GRAFT VERSUS HOST DISEASE IN SKIN [None]
  - ELECTROLYTE IMBALANCE [None]
  - GRAFT VERSUS HOST DISEASE [None]
  - HYPERCALCAEMIA [None]
  - LUNG INFECTION [None]
  - LUNG LOBECTOMY [None]
  - LUNG NEOPLASM [None]
  - METASTASES TO LYMPH NODES [None]
  - METASTASES TO PLEURA [None]
  - PLEURAL EFFUSION [None]
